FAERS Safety Report 9898618 (Version 2)
Quarter: 2014Q1

REPORT INFORMATION
  Report Type: Spontaneous
  Country: US (occurrence: US)
  Receive Date: 20140214
  Receipt Date: 20140214
  Transmission Date: 20141002
  Serious: No
  Sender: FDA-Public Use
  Company Number: US-GILEAD-2011-0044403

PATIENT
  Sex: Female
  Weight: 146.94 kg

DRUGS (4)
  1. LETAIRIS [Suspect]
     Indication: PULMONARY HYPERTENSION
     Dosage: 10 MG, QD
     Route: 048
     Dates: start: 20080829
  2. ASPIRIN [Concomitant]
  3. SYMBICORT [Concomitant]
  4. ALBUTEROL SULFATE [Concomitant]

REACTIONS (3)
  - Fatigue [Unknown]
  - Pyrexia [Unknown]
  - Dyspnoea [Unknown]
